FAERS Safety Report 9679257 (Version 1)
Quarter: 2013Q4

REPORT INFORMATION
  Report Type: Spontaneous
  Country: US (occurrence: US)
  Receive Date: 20131109
  Receipt Date: 20131109
  Transmission Date: 20140711
  Serious: No
  Sender: FDA-Public Use
  Company Number: US-009507513-1311USA002888

PATIENT
  Sex: Male

DRUGS (4)
  1. PEGINTRON [Suspect]
     Indication: HEPATITIS C
     Dosage: UNK
     Dates: start: 19990101, end: 20000101
  2. PEGINTRON [Suspect]
     Dosage: UNK
     Dates: start: 201311
  3. REBETOL [Suspect]
     Indication: HEPATITIS C
     Dosage: UNK
     Route: 048
     Dates: start: 19990101, end: 20000101
  4. REBETOL [Suspect]
     Dosage: UNK
     Route: 048
     Dates: start: 201311

REACTIONS (1)
  - Drug effect incomplete [Unknown]
